FAERS Safety Report 5620053-2 (Version None)
Quarter: 2008Q1

REPORT INFORMATION
  Report Type: 
  Country: None (occurrence: None)
  Receive Date: 20080208
  Receipt Date: 20080130
  Transmission Date: 20080703
  Serious: Yes (Hospitalization, Other)
  Sender: FDA-Public Use
  Company Number: US-JNJFOC-20080200336

PATIENT
  Sex: Female
  Weight: 63.5 kg

DRUGS (19)
  1. DURAGESIC-100 [Suspect]
     Route: 062
  2. DURAGESIC-100 [Suspect]
     Route: 062
  3. DURAGESIC-100 [Suspect]
     Indication: FIBROMYALGIA
     Route: 062
  4. ALCOHOL [Suspect]
     Indication: ALCOHOLISM
     Route: 048
  5. COLACE [Concomitant]
     Indication: ABNORMAL FAECES
     Route: 048
  6. EPOGEN [Concomitant]
     Indication: ANAEMIA
     Route: 058
  7. PEPCID [Concomitant]
     Indication: GASTRIC DISORDER
     Route: 048
  8. LISINOPRIL [Concomitant]
     Indication: HYPERTENSION
     Route: 048
  9. ATIVAN [Concomitant]
     Route: 048
  10. ATIVAN [Concomitant]
     Indication: ANXIETY
     Route: 048
  11. MAGNESIUM [Concomitant]
     Indication: MEDICAL DIET
     Route: 048
  12. LOPRESSOR [Concomitant]
     Indication: HEART RATE INCREASED
     Route: 048
  13. NICOTINE [Concomitant]
     Indication: EX-SMOKER
     Route: 062
  14. PERCOCET [Concomitant]
     Indication: PAIN
     Dosage: 1 EVERY 4 HOURS AS NEEDED
     Route: 048
  15. DOXEPIN HCL [Concomitant]
     Indication: PAIN
     Route: 048
  16. DILANTIN [Concomitant]
     Route: 048
  17. DILANTIN [Concomitant]
     Indication: NEUROPATHY PERIPHERAL
     Route: 048
  18. LYRICA [Concomitant]
     Indication: NEUROPATHY PERIPHERAL
     Route: 048
  19. THIAMINE [Concomitant]
     Indication: MEDICAL DIET
     Route: 048

REACTIONS (7)
  - CONFUSIONAL STATE [None]
  - DRUG DEPENDENCE [None]
  - FALL [None]
  - INCORRECT ROUTE OF DRUG ADMINISTRATION [None]
  - INTENTIONAL DRUG MISUSE [None]
  - OFF LABEL USE [None]
  - SUBDURAL HAEMATOMA [None]
